FAERS Safety Report 25923408 (Version 1)
Quarter: 2025Q4

REPORT INFORMATION
  Report Type: Spontaneous
  Country: BR (occurrence: BR)
  Receive Date: 20251015
  Receipt Date: 20251015
  Transmission Date: 20260117
  Serious: No
  Sender: ANI
  Company Number: BR-ANIPHARMA-030928

PATIENT
  Sex: Male

DRUGS (1)
  1. FLUVOXAMINE MALEATE [Suspect]
     Active Substance: FLUVOXAMINE MALEATE
     Indication: Depression
     Dosage: STRENGTH: 100 MG
     Dates: start: 20250921

REACTIONS (3)
  - Muscular weakness [Unknown]
  - Head discomfort [Unknown]
  - Depression [Unknown]
